FAERS Safety Report 5515595-4 (Version None)
Quarter: 2007Q4

REPORT INFORMATION
  Report Type: 
  Country: None (occurrence: None)
  Receive Date: 20071113
  Receipt Date: 20070620
  Transmission Date: 20080405
  Serious: No
  Sender: FDA-Public Use
  Company Number: A0658964A

PATIENT

DRUGS (3)
  1. COREG [Suspect]
     Indication: DRUG USE FOR UNKNOWN INDICATION
     Dosage: 12.5MG FOUR TIMES PER DAY
     Route: 048
  2. ATENOLOL [Suspect]
     Route: 065
  3. MICARDIS [Suspect]
     Route: 065

REACTIONS (1)
  - COUGH [None]
